FAERS Safety Report 4484241-3 (Version None)
Quarter: 2004Q4

REPORT INFORMATION
  Report Type: 
  Country: None (occurrence: None)
  Receive Date: 20041025
  Receipt Date: 20040930
  Transmission Date: 20050328
  Serious: Yes (Other)
  Sender: FDA-Public Use
  Company Number: GB-GLAXOSMITHKLINE-B0347071A

PATIENT
  Age: 30 Year
  Sex: Male

DRUGS (2)
  1. SEROXAT [Suspect]
     Indication: DEPRESSION
     Dosage: 30MG PER DAY
     Route: 048
  2. ZOPICLONE [Concomitant]
     Dosage: 7.5MG AT NIGHT

REACTIONS (8)
  - BLOOD CALCIUM INCREASED [None]
  - BLOOD POTASSIUM INCREASED [None]
  - INSOMNIA [None]
  - LETHARGY [None]
  - NEUTROPENIA [None]
  - OVERDOSE [None]
  - SUICIDAL IDEATION [None]
  - WEIGHT INCREASED [None]
